FAERS Safety Report 4870391-6 (Version None)
Quarter: 2006Q1

REPORT INFORMATION
  Report Type: 
  Country: None (occurrence: None)
  Receive Date: 20060103
  Receipt Date: 20051222
  Transmission Date: 20060701
  Serious: Yes (Death)
  Sender: FDA-Public Use
  Company Number: US-JNJFOC-20051205726

PATIENT
  Sex: Male
  Weight: 51.71 kg

DRUGS (13)
  1. INFLIXIMAB [Suspect]
     Indication: RHEUMATOID ARTHRITIS
     Dosage: STOPPED MONTHS BEFORE DEATH
     Route: 042
  2. METHOTREXATE [Concomitant]
  3. ARAVA [Concomitant]
  4. PREDNISONE [Concomitant]
  5. FOSAMAX [Concomitant]
  6. NEURONTIN [Concomitant]
  7. REMERON [Concomitant]
  8. AMITRIPTYLINE [Concomitant]
  9. LASIX [Concomitant]
  10. POTASSIUM [Concomitant]
  11. VICODIN ES [Concomitant]
  12. VICODIN ES [Concomitant]
  13. MS CONTIN [Concomitant]

REACTIONS (4)
  - CHRONIC OBSTRUCTIVE PULMONARY DISEASE [None]
  - DEATH [None]
  - EMPHYSEMA [None]
  - PULMONARY MYCOSIS [None]
